FAERS Safety Report 10053436 (Version 1)
Quarter: 2014Q2

REPORT INFORMATION
  Report Type: Spontaneous
  Country: US (occurrence: US)
  Receive Date: 20140402
  Receipt Date: 20140402
  Transmission Date: 20141212
  Serious: Yes (Hospitalization, Other)
  Sender: FDA-Public Use
  Company Number: PHEH2014US006356

PATIENT
  Sex: Male

DRUGS (1)
  1. CLOZARIL [Suspect]
     Dosage: 100 MG, UNK

REACTIONS (4)
  - Infection [Unknown]
  - Deep vein thrombosis [Unknown]
  - White blood cell count increased [Unknown]
  - Neutrophil count increased [Unknown]
